FAERS Safety Report 9528691 (Version 1)
Quarter: 2013Q3

REPORT INFORMATION
  Report Type: Spontaneous
  Country: US (occurrence: US)
  Receive Date: 20130917
  Receipt Date: 20130917
  Transmission Date: 20140515
  Serious: No
  Sender: FDA-Public Use
  Company Number: US-BAYER-2013-111747

PATIENT
  Age: 81 Year
  Sex: Female
  Weight: 86 kg

DRUGS (5)
  1. ALEVE CAPLET [Suspect]
     Route: 048
  2. LISINOPRIL [Concomitant]
     Dosage: UNK
  3. ARMOUR THYROID [Concomitant]
     Dosage: UNK
  4. SPIRONOLACTONE [Concomitant]
     Dosage: UNK
  5. BENFOTIAMINE [Concomitant]
     Dosage: UNK

REACTIONS (2)
  - Hypertension [None]
  - Incorrect dose administered [None]
